FAERS Safety Report 4783710-6 (Version None)
Quarter: 2005Q3

REPORT INFORMATION
  Report Type: 
  Country: None (occurrence: None)
  Receive Date: 20050927
  Receipt Date: 20050524
  Transmission Date: 20060218
  Serious: No
  Sender: FDA-Public Use
  Company Number: USA050599093

PATIENT
  Age: 59 Year
  Sex: Male

DRUGS (1)
  1. STRATTERA [Suspect]
     Dosage: 40 MG DAY
     Dates: start: 20040819, end: 20040821

REACTIONS (2)
  - AMNESIA [None]
  - PSYCHOTIC DISORDER [None]
